FAERS Safety Report 5252805-5 (Version None)
Quarter: 2007Q1

REPORT INFORMATION
  Report Type: 
  Country: None (occurrence: None)
  Receive Date: 20070301
  Receipt Date: 20061206
  Transmission Date: 20070707
  Serious: No
  Sender: FDA-Public Use
  Company Number: US-GLAXOSMITHKLINE-A0630637A

PATIENT
  Age: 16 Year
  Sex: Male

DRUGS (5)
  1. LAMICTAL [Suspect]
     Indication: DEPRESSION
     Dosage: 350MG PER DAY
     Route: 048
     Dates: start: 20060101
  2. CONCERTA [Concomitant]
  3. RITALIN [Concomitant]
  4. XANAX [Concomitant]
  5. PAXIL [Concomitant]

REACTIONS (3)
  - ALOPECIA [None]
  - DRUG ADMINISTRATION ERROR [None]
  - HYPOTRICHOSIS [None]
